FAERS Safety Report 10882076 (Version 6)
Quarter: 2015Q2

REPORT INFORMATION
  Report Type: Spontaneous
  Country: US (occurrence: US)
  Receive Date: 20150303
  Receipt Date: 20150513
  Transmission Date: 20150821
  Serious: Yes (Hospitalization, Other)
  Sender: FDA-Public Use
  Company Number: US-009507513-1109USA00853

PATIENT
  Sex: Female
  Weight: 81.63 kg

DRUGS (3)
  1. ALENDRONATE SODIUM. [Suspect]
     Active Substance: ALENDRONATE SODIUM
     Indication: OSTEOPOROSIS
     Dosage: 70 MG, QW
     Route: 048
     Dates: start: 20090615, end: 201010
  2. FOSAMAX [Suspect]
     Active Substance: ALENDRONATE SODIUM
     Indication: OSTEOPOROSIS
     Dosage: 70 MG, QD
     Route: 048
  3. FOSAMAX [Suspect]
     Active Substance: ALENDRONATE SODIUM
     Dosage: UNK
     Route: 048
     Dates: start: 20070824

REACTIONS (64)
  - Body height decreased [Unknown]
  - Periodontitis [Unknown]
  - Amalgam tattoo [Unknown]
  - Vitamin D deficiency [Unknown]
  - Myalgia [Unknown]
  - Bone disorder [Unknown]
  - Spinal pain [Unknown]
  - Hypertension [Unknown]
  - Arthritis [Unknown]
  - Muscular weakness [Unknown]
  - Vertigo positional [Unknown]
  - Hypertrophy [Unknown]
  - Palatal disorder [Unknown]
  - Fracture [Unknown]
  - Myositis [Unknown]
  - Dental caries [Unknown]
  - Drug ineffective [Unknown]
  - Nausea [Unknown]
  - Femur fracture [Not Recovered/Not Resolved]
  - Amnesia [Unknown]
  - Spinal osteoarthritis [Unknown]
  - Sjogren^s syndrome [Unknown]
  - Scoliosis [Unknown]
  - Osteomyelitis [Unknown]
  - Abscess oral [Unknown]
  - Spinal osteoarthritis [Unknown]
  - Bursitis [Unknown]
  - Muscle spasms [Unknown]
  - Vomiting [Unknown]
  - Intramedullary rod insertion [Unknown]
  - Anaemia [Unknown]
  - Osteonecrosis of jaw [Unknown]
  - Stress fracture [Unknown]
  - Vomiting [Unknown]
  - Anxiety [Unknown]
  - Raynaud^s phenomenon [Unknown]
  - Back pain [Not Recovered/Not Resolved]
  - Loose tooth [Unknown]
  - Pain [Not Recovered/Not Resolved]
  - Lumbar radiculopathy [Unknown]
  - Undifferentiated connective tissue disease [Not Recovered/Not Resolved]
  - Intervertebral disc degeneration [Unknown]
  - Aortic calcification [Unknown]
  - Bone density decreased [Unknown]
  - Osteoarthritis [Unknown]
  - Traumatic occlusion [Unknown]
  - Intramedullary rod insertion [Unknown]
  - Nausea [Unknown]
  - Osteoarthritis [Unknown]
  - Osteopenia [Unknown]
  - Immunology test abnormal [Unknown]
  - Hypercholesterolaemia [Unknown]
  - Polyarthritis [Unknown]
  - Macular degeneration [Unknown]
  - Gingivitis [Unknown]
  - Oedema peripheral [Unknown]
  - Tooth disorder [Unknown]
  - Depression [Unknown]
  - Mixed connective tissue disease [Unknown]
  - Fibromyalgia [Unknown]
  - Hyperparathyroidism [Unknown]
  - Arthralgia [Unknown]
  - Urticaria [Unknown]
  - Inappropriate schedule of drug administration [Unknown]

NARRATIVE: CASE EVENT DATE: 2007
